FAERS Safety Report 10551716 (Version 2)
Quarter: 2014Q4

REPORT INFORMATION
  Report Type: Spontaneous
  Country: US (occurrence: US)
  Receive Date: 20141029
  Receipt Date: 20141204
  Transmission Date: 20150529
  Serious: No
  Sender: FDA-Public Use
  Company Number: US-PFIZER INC-2014295235

PATIENT
  Age: 55 Year
  Sex: Male
  Weight: 67 kg

DRUGS (10)
  1. ERBITUX [Suspect]
     Active Substance: CETUXIMAB
     Indication: RECTAL CANCER
     Dosage: 208 MG, WEEKLY
     Route: 042
     Dates: start: 20140603, end: 20141014
  2. ERBITUX [Suspect]
     Active Substance: CETUXIMAB
     Dosage: 408 MG, WEEKLY VIA PORT
     Route: 042
     Dates: start: 20140610, end: 20141007
  3. CAMPTOSAR [Suspect]
     Active Substance: IRINOTECAN HYDROCHLORIDE
     Indication: RECTAL CANCER
     Dosage: 200 MG, UNK (Q O WEEK)
     Route: 042
     Dates: start: 20140603, end: 20141014
  4. CAMPTOSAR [Suspect]
     Active Substance: IRINOTECAN HYDROCHLORIDE
     Dosage: 200 MG, CYCLIC: EVERY TWO WEEKS VIA PORT
     Route: 042
     Dates: start: 20140610, end: 20141007
  5. 5 FU [Suspect]
     Active Substance: FLUOROURACIL
     Dosage: 4060 MG, (Q O WEEK OVER 46HRS)
     Route: 042
     Dates: start: 20140603, end: 20141014
  6. BENADRYL [Concomitant]
     Active Substance: DIPHENHYDRAMINE HYDROCHLORIDE
     Dosage: 25 MG, EVERY OTHER WEEK
     Route: 042
  7. ALOXI [Concomitant]
     Active Substance: PALONOSETRON HYDROCHLORIDE
     Indication: ANTIEMETIC SUPPORTIVE CARE
     Dosage: 250 UG, EVERYOTHER WEEK
     Route: 042
  8. DEXAMETHASONE. [Concomitant]
     Active Substance: DEXAMETHASONE
     Dosage: 10 MG, EVERY OTHER WEEK
     Route: 042
  9. 5 FU [Suspect]
     Active Substance: FLUOROURACIL
     Indication: RECTAL CANCER
     Dosage: 4060 MG, CONTINOUS INFUSION OVER 46 HOURS
     Route: 042
  10. LEUCOVORIN [Concomitant]
     Active Substance: LEUCOVORIN
     Dosage: 300 MG, EVERY OTHER WEEK
     Route: 042

REACTIONS (1)
  - Skin exfoliation [Recovered/Resolved]

NARRATIVE: CASE EVENT DATE: 20141014
